FAERS Safety Report 16290798 (Version 2)
Quarter: 2019Q2

REPORT INFORMATION
  Report Type: Spontaneous
  Country: US (occurrence: US)
  Receive Date: 20190509
  Receipt Date: 20190520
  Transmission Date: 20190711
  Serious: No
  Sender: FDA-Public Use
  Company Number: US-PFIZER INC-2019190824

PATIENT
  Sex: Female

DRUGS (1)
  1. HYDROMORPHONE HYDROCHLORIDE. [Suspect]
     Active Substance: HYDROMORPHONE HYDROCHLORIDE
     Dosage: UNK

REACTIONS (6)
  - Rash [Unknown]
  - Hyperhidrosis [Unknown]
  - Headache [Unknown]
  - Hot flush [Unknown]
  - Abdominal discomfort [Unknown]
  - Urticaria [Unknown]
